FAERS Safety Report 6460371-1 (Version None)
Quarter: 2009Q4

REPORT INFORMATION
  Report Type: 
  Country: None (occurrence: None)
  Receive Date: 20091130
  Receipt Date: 20091126
  Transmission Date: 20100525
  Serious: Yes (Death)
  Sender: FDA-Public Use
  Company Number: JP-ELI_LILLY_AND_COMPANY-JP200906002781

PATIENT
  Age: 83 Year
  Sex: Male

DRUGS (1)
  1. GEMZAR [Suspect]
     Indication: GALLBLADDER CANCER
     Dosage: 1200 MG, OTHER
     Route: 042
     Dates: start: 20090427, end: 20090518

REACTIONS (1)
  - MYOCARDIAL INFARCTION [None]
